FAERS Safety Report 14497907 (Version 1)
Quarter: 2018Q1

REPORT INFORMATION
  Report Type: Spontaneous
  Country: US (occurrence: US)
  Receive Date: 20180206
  Receipt Date: 20180206
  Transmission Date: 20180509
  Serious: Yes (Death)
  Sender: FDA-Public Use
  Company Number: None

PATIENT
  Sex: Male

DRUGS (7)
  1. LEVOTHYROXIN [Concomitant]
     Active Substance: LEVOTHYROXINE
  2. CITALOPRAM [Concomitant]
     Active Substance: CITALOPRAM HYDROBROMIDE
  3. IBRANCE [Suspect]
     Active Substance: PALBOCICLIB
     Indication: BREAST CANCER FEMALE
     Route: 048
     Dates: start: 20170502
  4. GABAPENTIN. [Concomitant]
     Active Substance: GABAPENTIN
  5. LETROZOLE. [Concomitant]
     Active Substance: LETROZOLE
  6. ANASTROZOLE. [Concomitant]
     Active Substance: ANASTROZOLE
  7. CENTRUM [Concomitant]
     Active Substance: VITAMINS

REACTIONS (1)
  - Death [None]
